FAERS Safety Report 5635162-1 (Version None)
Quarter: 2008Q1

REPORT INFORMATION
  Report Type: 
  Country: None (occurrence: None)
  Receive Date: 20080222
  Receipt Date: 20080213
  Transmission Date: 20080703
  Serious: Yes (Other)
  Sender: FDA-Public Use
  Company Number: US-ABBOTT-08P-163-0438385-00

PATIENT
  Sex: Female
  Weight: 70.45 kg

DRUGS (9)
  1. VICODIN [Suspect]
     Indication: TENDONITIS
     Dates: start: 20080116, end: 20080116
  2. CELECOXIB [Interacting]
     Indication: ARTHRITIS
     Dates: start: 20080116
  3. CELECOXIB [Interacting]
  4. XANAX [Suspect]
     Indication: PANIC ATTACK
  5. ALPRAZOLAM [Suspect]
     Indication: PANIC ATTACK
  6. NAPROXEN [Suspect]
     Indication: TENDONITIS
  7. FLUOXETINE HYDROCHLORIDE [Concomitant]
     Indication: DRUG USE FOR UNKNOWN INDICATION
  8. PRAVASTATIN SODIUM [Concomitant]
     Indication: BLOOD CHOLESTEROL INCREASED
  9. PERINDOPRIL ERBUMINE [Concomitant]
     Indication: BLOOD PRESSURE INCREASED

REACTIONS (7)
  - ANXIETY [None]
  - DRUG INEFFECTIVE [None]
  - DRUG INTERACTION [None]
  - EUPHORIC MOOD [None]
  - FEELING ABNORMAL [None]
  - HYPERHIDROSIS [None]
  - PAIN [None]
